FAERS Safety Report 9009423 (Version 1)
Quarter: 2013Q1

REPORT INFORMATION
  Report Type: Spontaneous
  Country: BR (occurrence: BR)
  Receive Date: 20130111
  Receipt Date: 20130111
  Transmission Date: 20140127
  Serious: Yes (Other)
  Sender: FDA-Public Use
  Company Number: BR-ASTRAZENECA-2013SE01220

PATIENT
  Sex: Male

DRUGS (2)
  1. ATACAND HCT [Suspect]
     Dosage: 8/12.5 MG
     Route: 048
     Dates: start: 2008, end: 201209
  2. ATACAND HCT [Suspect]
     Dosage: 16/12.5 MG
     Route: 048

REACTIONS (3)
  - Blood pressure increased [Recovered/Resolved]
  - Weight increased [Unknown]
  - Syncope [Unknown]
